FAERS Safety Report 6750390-X (Version None)
Quarter: 2010Q2

REPORT INFORMATION
  Report Type: 
  Country: None (occurrence: None)
  Receive Date: 20100601
  Receipt Date: 20100521
  Transmission Date: 20101027
  Serious: Yes (Other)
  Sender: FDA-Public Use
  Company Number: US-AMGEN-KDL412643

PATIENT
  Sex: Female
  Weight: 65.8 kg

DRUGS (2)
  1. ENBREL [Suspect]
     Indication: RHEUMATOID ARTHRITIS
     Route: 058
     Dates: start: 20010101
  2. UNSPECIFIED STEROIDS [Concomitant]

REACTIONS (15)
  - ADRENAL ADENOMA [None]
  - BLOOD CHOLESTEROL INCREASED [None]
  - CHOLELITHIASIS [None]
  - CONSTIPATION [None]
  - DIARRHOEA [None]
  - DIVERTICULITIS [None]
  - DIVERTICULUM [None]
  - FIBROMYALGIA [None]
  - GASTRIC ULCER [None]
  - GASTRITIS [None]
  - GASTROINTESTINAL DISORDER [None]
  - HEPATIC CYST [None]
  - INFLUENZA LIKE ILLNESS [None]
  - NEPHROLITHIASIS [None]
  - RHEUMATOID ARTHRITIS [None]
